FAERS Safety Report 5793396-X (Version None)
Quarter: 2008Q2

REPORT INFORMATION
  Report Type: 
  Country: None (occurrence: None)
  Receive Date: 20080627
  Receipt Date: 20080616
  Transmission Date: 20081010
  Serious: Yes (Other)
  Sender: FDA-Public Use
  Company Number: FR-ROCHE-570822

PATIENT
  Sex: Male

DRUGS (4)
  1. ROVALCYTE [Suspect]
     Route: 065
  2. ROVALCYTE [Suspect]
     Dosage: DOSE REDUCED.
     Route: 065
     Dates: start: 20080610, end: 20080613
  3. CELLCEPT [Suspect]
     Indication: RENAL TRANSPLANT
     Route: 065
     Dates: end: 20080613
  4. NEORAL [Concomitant]

REACTIONS (1)
  - AGRANULOCYTOSIS [None]
